FAERS Safety Report 19157624 (Version 1)
Quarter: 2021Q2

REPORT INFORMATION
  Report Type: Spontaneous
  Country: US (occurrence: US)
  Receive Date: 20210420
  Receipt Date: 20210420
  Transmission Date: 20210717
  Serious: No
  Sender: FDA-Public Use
  Company Number: US-AMGEN-USASP2021057647

PATIENT
  Age: 65 Year
  Sex: Female

DRUGS (4)
  1. REPATHA [Suspect]
     Active Substance: EVOLOCUMAB
     Indication: BLOOD CHOLESTEROL INCREASED
     Dosage: 140 MILLIGRAM, 2 TIMES A MONTH
     Route: 065
     Dates: start: 2020
  2. ASPIRINE [Concomitant]
     Active Substance: ASPIRIN
  3. REPATHA [Suspect]
     Active Substance: EVOLOCUMAB
     Dosage: 140 MILLIGRAM, 2 TIMES A MONTH
     Route: 065
     Dates: start: 20210413
  4. PLAVIX [Concomitant]
     Active Substance: CLOPIDOGREL BISULFATE

REACTIONS (3)
  - Injection site bruising [Recovered/Resolved]
  - Wrong technique in product usage process [Unknown]
  - Injection site pain [Unknown]
